FAERS Safety Report 10456229 (Version 1)
Quarter: 2014Q3

REPORT INFORMATION
  Report Type: Spontaneous
  Country: RO (occurrence: RO)
  Receive Date: 20140916
  Receipt Date: 20140916
  Transmission Date: 20150326
  Serious: Yes (Other)
  Sender: FDA-Public Use
  Company Number: RO-RANBAXY-2014RR-85173

PATIENT
  Age: 19 Year
  Sex: Female

DRUGS (2)
  1. KLABAX [Suspect]
     Active Substance: CLARITHROMYCIN
     Indication: PRODUCT USED FOR UNKNOWN INDICATION
     Dosage: 9 PILLS
     Route: 048
  2. ALGOCALMIN [Suspect]
     Active Substance: METAMIZOLE SODIUM
     Indication: PRODUCT USED FOR UNKNOWN INDICATION
     Dosage: 2 PILLS
     Route: 048

REACTIONS (5)
  - Intentional overdose [Recovered/Resolved]
  - Malaise [Recovered/Resolved]
  - Suicide attempt [Recovered/Resolved]
  - Toxicity to various agents [None]
  - Agitation [Recovered/Resolved]
